FAERS Safety Report 21639100 (Version 1)
Quarter: 2022Q4

REPORT INFORMATION
  Report Type: Spontaneous
  Country: US (occurrence: US)
  Receive Date: 20221124
  Receipt Date: 20221124
  Transmission Date: 20230113
  Serious: No
  Sender: FDA-Public Use
  Company Number: US-SA-SAC20221124000109

PATIENT
  Sex: Female

DRUGS (18)
  1. AUBAGIO [Suspect]
     Active Substance: TERIFLUNOMIDE
     Indication: Multiple sclerosis
     Dosage: 14 MG, QD
     Route: 048
  2. EPINEPHRINE [Concomitant]
     Active Substance: EPINEPHRINE
  3. ALBUTEROL SULFATE [Concomitant]
     Active Substance: ALBUTEROL SULFATE
  4. PREGABALIN [Concomitant]
     Active Substance: PREGABALIN
  5. SPIRONOLACTONE [Concomitant]
     Active Substance: SPIRONOLACTONE
  6. ESTRADIOL [Concomitant]
     Active Substance: ESTRADIOL
  7. HYDROCHLOROTHIAZIDE [Concomitant]
     Active Substance: HYDROCHLOROTHIAZIDE
  8. FINASTERIDE [Concomitant]
     Active Substance: FINASTERIDE
  9. ASPIRIN [Concomitant]
     Active Substance: ASPIRIN
  10. DEXTROAMPHETAMINE [Concomitant]
     Active Substance: DEXTROAMPHETAMINE
  11. AMPHETAMINE [Concomitant]
     Active Substance: AMPHETAMINE
  12. BUPROPION [Concomitant]
     Active Substance: BUPROPION
  13. BACLOFEN [Concomitant]
     Active Substance: BACLOFEN
  14. VITAMIN B COMPLEX [Concomitant]
     Active Substance: CYANOCOBALAMIN\DEXPANTHENOL\NIACINAMIDE\PYRIDOXINE HYDROCHLORIDE\RIBOFLAVIN 5^-PHOSPHATE SODIUM\THIA
  15. CLONAZEPAM [Concomitant]
     Active Substance: CLONAZEPAM
  16. METHADONE HYDROCHLORIDE [Concomitant]
     Active Substance: METHADONE HYDROCHLORIDE
  17. XANAX [Concomitant]
     Active Substance: ALPRAZOLAM
  18. AUBAGIO [Concomitant]
     Active Substance: TERIFLUNOMIDE

REACTIONS (2)
  - Malaise [Unknown]
  - Nasopharyngitis [Unknown]
